FAERS Safety Report 21458491 (Version 6)
Quarter: 2022Q4

REPORT INFORMATION
  Report Type: Spontaneous
  Country: US (occurrence: US)
  Receive Date: 20221014
  Receipt Date: 20221116
  Transmission Date: 20230113
  Serious: Yes (Disabling, Other)
  Sender: FDA-Public Use
  Company Number: US-PFIZER INC-PV202200081632

PATIENT
  Age: 79 Year

DRUGS (1)
  1. PREMARIN [Suspect]
     Active Substance: ESTROGENS, CONJUGATED
     Dosage: UNK

REACTIONS (7)
  - Eye disorder [Unknown]
  - COVID-19 [Unknown]
  - Feeling abnormal [Unknown]
  - Skin disorder [Unknown]
  - Hot flush [Unknown]
  - Night sweats [Unknown]
  - Frustration tolerance decreased [Unknown]
